FAERS Safety Report 19940265 (Version 4)
Quarter: 2022Q1

REPORT INFORMATION
  Report Type: Spontaneous
  Country: DE (occurrence: DE)
  Receive Date: 20211011
  Receipt Date: 20220111
  Transmission Date: 20220424
  Serious: Yes (Other)
  Sender: FDA-Public Use
  Company Number: DE-NOVARTISPH-NVSC2021DE230570

PATIENT
  Age: 78 Year
  Sex: Female
  Weight: 65 kg

DRUGS (8)
  1. DEXAMETHASONE [Suspect]
     Active Substance: DEXAMETHASONE
     Indication: Plasma cell myeloma
     Dosage: 8 MG, QD
     Route: 065
     Dates: start: 20180220
  2. DEXAMETHASONE [Suspect]
     Active Substance: DEXAMETHASONE
     Dosage: 28 MG
     Route: 065
     Dates: start: 20210107
  3. LENALIDOMIDE [Suspect]
     Active Substance: LENALIDOMIDE
     Indication: Plasma cell myeloma
     Dosage: 20 MG, QD (DAILY DOSE OF 20 MG)
     Route: 065
     Dates: start: 20180807, end: 20210120
  4. ELOTUZUMAB [Suspect]
     Active Substance: ELOTUZUMAB
     Indication: Plasma cell myeloma
     Dosage: 719 MILLIGRAM, QWK
     Route: 065
     Dates: start: 20180220, end: 20180313
  5. ELOTUZUMAB [Suspect]
     Active Substance: ELOTUZUMAB
     Dosage: 570 MG, QD
     Route: 065
     Dates: start: 20200609, end: 20210511
  6. ELOTUZUMAB [Suspect]
     Active Substance: ELOTUZUMAB
     Dosage: 570 MG
     Route: 065
     Dates: start: 20210107
  7. ELOTUZUMAB [Suspect]
     Active Substance: ELOTUZUMAB
     Dosage: 28 MG
     Route: 065
     Dates: start: 20210107
  8. ELOTUZUMAB [Suspect]
     Active Substance: ELOTUZUMAB
     Dosage: 20 MG
     Route: 065
     Dates: start: 20210120

REACTIONS (3)
  - Thrombocytopenia [Unknown]
  - Prescribed underdose [Unknown]
  - Prescribed overdose [Unknown]

NARRATIVE: CASE EVENT DATE: 20210121
